FAERS Safety Report 4605441-5 (Version None)
Quarter: 2005Q1

REPORT INFORMATION
  Report Type: 
  Country: None (occurrence: None)
  Receive Date: 20050310
  Receipt Date: 20040714
  Transmission Date: 20050727
  Serious: No
  Sender: FDA-Public Use
  Company Number: US-BRISTOL-MYERS SQUIBB COMPANY-12648044

PATIENT
  Age: 32 Year
  Sex: Female

DRUGS (4)
  1. MONISTAT [Suspect]
     Indication: VAGINAL MYCOSIS
     Route: 067
     Dates: start: 20040712, end: 20040712
  2. WELLBUTRIN [Concomitant]
  3. BENADRYL [Concomitant]
  4. ATIVAN [Concomitant]

REACTIONS (2)
  - ABDOMINAL PAIN [None]
  - PAIN IN EXTREMITY [None]
